FAERS Safety Report 18372535 (Version 1)
Quarter: 2020Q4

REPORT INFORMATION
  Report Type: Spontaneous
  Country: FR (occurrence: FR)
  Receive Date: 20201012
  Receipt Date: 20201012
  Transmission Date: 20210114
  Serious: Yes (Life-Threatening)
  Sender: FDA-Public Use
  Company Number: FR-MYLANLABS-2020M1085146

PATIENT
  Age: 53 Year
  Sex: Male
  Weight: 100 kg

DRUGS (2)
  1. BUPIVACAINE MYLAN 5 MG/ML, SOLUTION INJECTABLE EN FLACON [Suspect]
     Active Substance: BUPIVACAINE
     Indication: SPINAL ANAESTHESIA
     Dosage: 12 MILLIGRAM, TOTAL
     Route: 024
     Dates: start: 20200622, end: 20200622
  2. SUFENTANIL MERCK [Suspect]
     Active Substance: SUFENTANIL
     Indication: SPINAL ANAESTHESIA
     Dosage: 3 MICROGRAM, TOTAL
     Route: 024
     Dates: start: 20200622, end: 20200622

REACTIONS (3)
  - Anaesthetic complication [Recovered/Resolved with Sequelae]
  - Cardiac arrest [Recovered/Resolved with Sequelae]
  - Troponin increased [Recovered/Resolved with Sequelae]

NARRATIVE: CASE EVENT DATE: 20200622
